FAERS Safety Report 20744730 (Version 1)
Quarter: 2022Q2

REPORT INFORMATION
  Report Type: Report from Study
  Country: US (occurrence: US)
  Receive Date: 20220425
  Receipt Date: 20220425
  Transmission Date: 20220721
  Serious: No
  Sender: FDA-Public Use
  Company Number: US-MIRM-000380

PATIENT
  Sex: Male

DRUGS (2)
  1. LIVMARLI [Suspect]
     Active Substance: MARALIXIBAT CHLORIDE
     Indication: Pruritus
     Route: 048
     Dates: start: 20220214
  2. 1328777 (GLOBALC3Sep19): Ursodiol [Concomitant]
     Route: 048

REACTIONS (2)
  - Weight decreased [Unknown]
  - Alanine aminotransferase increased [Not Recovered/Not Resolved]
